FAERS Safety Report 18198770 (Version 1)
Quarter: 2020Q3

REPORT INFORMATION
  Report Type: Spontaneous
  Country: OM (occurrence: OM)
  Receive Date: 20200826
  Receipt Date: 20200826
  Transmission Date: 20201103
  Serious: Yes (Other)
  Sender: FDA-Public Use
  Company Number: OM-SA-2020SA225249

PATIENT

DRUGS (5)
  1. ANTI?THYMOCYTE GLOBULIN (RABBIT) NOS [Suspect]
     Active Substance: LAPINE T-LYMPHOCYTE IMMUNE GLOBULIN
  2. TREOSULFAN [Suspect]
     Active Substance: TREOSULFAN
  3. FLUDARABINE PHOSPHATE. [Suspect]
     Active Substance: FLUDARABINE PHOSPHATE
  4. THIOTEPA. [Suspect]
     Active Substance: THIOTEPA
  5. RITUXIMAB. [Suspect]
     Active Substance: RITUXIMAB

REACTIONS (2)
  - Bacterial sepsis [Unknown]
  - Multiple organ dysfunction syndrome [Unknown]
